FAERS Safety Report 15436705 (Version 3)
Quarter: 2019Q1

REPORT INFORMATION
  Report Type: Spontaneous
  Country: US (occurrence: US)
  Receive Date: 20180927
  Receipt Date: 20190115
  Transmission Date: 20190417
  Serious: Yes (Other)
  Sender: FDA-Public Use
  Company Number: US-ENDO PHARMACEUTICALS INC-2018-041365

PATIENT
  Age: 71 Year
  Sex: Male
  Weight: 104.76 kg

DRUGS (1)
  1. XIAFLEX [Suspect]
     Active Substance: COLLAGENASE CLOSTRIDIUM HISTOLYTICUM
     Indication: DUPUYTREN^S CONTRACTURE
     Dosage: 0.9 MG, SINGLE
     Route: 026
     Dates: start: 20180828, end: 20180828

REACTIONS (3)
  - Injection site cellulitis [Recovered/Resolved]
  - Skin laceration [Unknown]
  - Product quality issue [Unknown]

NARRATIVE: CASE EVENT DATE: 20180829
